FAERS Safety Report 8943771 (Version 2)
Quarter: 2013Q1

REPORT INFORMATION
  Report Type: Spontaneous
  Country: US (occurrence: US)
  Receive Date: 20121204
  Receipt Date: 20130103
  Transmission Date: 20140127
  Serious: Yes (Other)
  Sender: FDA-Public Use
  Company Number: PHEH2012US019966

PATIENT
  Sex: Female
  Weight: 90.7 kg

DRUGS (6)
  1. GILENYA [Suspect]
     Indication: MULTIPLE SCLEROSIS
     Dosage: 0.5 MG, QD
     Route: 048
     Dates: start: 20120918
  2. XANAX [Concomitant]
  3. AMBIEN [Concomitant]
  4. DILAUDID [Concomitant]
  5. TRAZODONE [Concomitant]
  6. VITAMIN D [Concomitant]

REACTIONS (12)
  - Movement disorder [Unknown]
  - Pain [Unknown]
  - Balance disorder [Unknown]
  - Gait disturbance [Unknown]
  - Local swelling [Not Recovered/Not Resolved]
  - Myalgia [Unknown]
  - Fall [Unknown]
  - Malaise [Unknown]
  - Fatigue [Recovering/Resolving]
  - Arthralgia [Recovering/Resolving]
  - Depression [Unknown]
  - Dizziness [Unknown]
